FAERS Safety Report 5337165-3 (Version None)
Quarter: 2007Q2

REPORT INFORMATION
  Report Type: 
  Country: None (occurrence: None)
  Receive Date: 20070529
  Receipt Date: 20070518
  Transmission Date: 20071010
  Serious: Yes (Other)
  Sender: FDA-Public Use
  Company Number: JP-PFIZER INC-2007034020

PATIENT
  Sex: Female
  Weight: 57.3 kg

DRUGS (11)
  1. ALDACTONE [Suspect]
     Indication: ASCITES
     Route: 048
  2. OMEPRAL [Suspect]
     Indication: REFLUX OESOPHAGITIS
     Route: 048
  3. SOLDACTONE [Concomitant]
     Indication: ASCITES
     Route: 048
     Dates: start: 20070319, end: 20070406
  4. LASIX [Concomitant]
     Route: 042
     Dates: start: 20070101, end: 20070415
  5. LASIX [Concomitant]
     Route: 048
  6. URSO 250 [Concomitant]
     Indication: HEPATITIS
     Route: 048
  7. GLAKAY [Concomitant]
     Route: 048
  8. TAGAMET [Concomitant]
     Indication: GASTRITIS
     Route: 048
     Dates: start: 20000105, end: 20070415
  9. NEUER [Concomitant]
     Indication: GASTRITIS
     Route: 048
     Dates: start: 20000105, end: 20070415
  10. HOKUNALIN [Concomitant]
     Route: 062
  11. LIVACT [Concomitant]
     Route: 048

REACTIONS (1)
  - METRORRHAGIA [None]
